FAERS Safety Report 8106779-X (Version None)
Quarter: 2012Q1

REPORT INFORMATION
  Report Type: 
  Country: None (occurrence: None)
  Receive Date: 20120202
  Receipt Date: 20120125
  Transmission Date: 20120608
  Serious: Yes (Hospitalization)
  Sender: FDA-Public Use
  Company Number: US-JNJFOC-20111001874

PATIENT
  Sex: Male
  Weight: 86.18 kg

DRUGS (3)
  1. DIOVAN [Concomitant]
     Indication: HYPERTENSION
     Route: 048
     Dates: start: 20010101
  2. AMBIEN [Concomitant]
     Indication: SLEEP DISORDER THERAPY
     Route: 048
  3. SIMPONI [Suspect]
     Indication: RHEUMATOID ARTHRITIS
     Route: 058
     Dates: start: 20110501, end: 20110601

REACTIONS (4)
  - AORTIC DISORDER [None]
  - GASTROENTERITIS VIRAL [None]
  - INCREASED TENDENCY TO BRUISE [None]
  - FATIGUE [None]
